FAERS Safety Report 15552808 (Version 1)
Quarter: 2018Q4

REPORT INFORMATION
  Report Type: Spontaneous
  Country: US (occurrence: US)
  Receive Date: 20181025
  Receipt Date: 20181025
  Transmission Date: 20190205
  Serious: No
  Sender: FDA-Public Use
  Company Number: US-AMGEN-USASP2018148224

PATIENT
  Age: 81 Year
  Sex: Female

DRUGS (1)
  1. ARANESP [Suspect]
     Active Substance: DARBEPOETIN ALFA
     Indication: AUTOIMMUNE HAEMOLYTIC ANAEMIA
     Dosage: 40 MUG, (AT TIMES SHE CAN GO 3 MONTHS BETWEEN DOSES)
     Route: 065
     Dates: start: 201509

REACTIONS (1)
  - Off label use [Unknown]
